FAERS Safety Report 9123928 (Version 1)
Quarter: 2013Q1

REPORT INFORMATION
  Report Type: Report from Study
  Country: US (occurrence: US)
  Receive Date: 20130116
  Receipt Date: 20130116
  Transmission Date: 20140127
  Serious: No
  Sender: FDA-Public Use
  Company Number: US-VERTEX PHARMACEUTICALS INC.-2013-000604

PATIENT
  Age: 56 Year
  Sex: Male

DRUGS (9)
  1. VX-950 (TELAPREVIR) [Suspect]
     Indication: HEPATITIS C
     Dosage: 750 MG, TID
     Route: 048
  2. PEGASYS [Suspect]
     Indication: HEPATITIS C
     Dosage: 180 ?G, UNK
  3. RIBAVIRIN [Suspect]
     Indication: HEPATITIS C
     Dosage: 200 MG, UNK
  4. ZYRTEC ALLERGY [Concomitant]
     Dosage: 10 MG, UNK
  5. ALBUTEROL                          /00139501/ [Concomitant]
     Dosage: 90 ?G, UNK
  6. PATADAY [Concomitant]
     Dosage: 0.2 %, UNK
  7. NASONEX [Concomitant]
     Dosage: 50 ?G, UNK
  8. VITAMIN C                          /00008001/ [Concomitant]
     Dosage: 500 MG, UNK
  9. MULTIVITAMIN                       /00097801/ [Concomitant]

REACTIONS (3)
  - Genital rash [Unknown]
  - Sinusitis [Unknown]
  - Anaemia [Unknown]
